FAERS Safety Report 15483425 (Version 1)
Quarter: 2018Q4

REPORT INFORMATION
  Report Type: Spontaneous
  Country: US (occurrence: US)
  Receive Date: 20181003
  Receipt Date: 20181003
  Transmission Date: 20190205
  Serious: Yes (Life-Threatening, Hospitalization, Other)
  Sender: FDA-Public Use
  Company Number: None

PATIENT
  Age: 69 Year
  Sex: Male
  Weight: 64.86 kg

DRUGS (14)
  1. HYDROCODONE [Concomitant]
     Active Substance: HYDROCODONE
  2. LEVEMIR [Concomitant]
     Active Substance: INSULIN DETEMIR
  3. MOBIC [Concomitant]
     Active Substance: MELOXICAM
  4. FLEXERIL [Concomitant]
     Active Substance: CYCLOBENZAPRINE HYDROCHLORIDE
  5. METOPROLOL. [Concomitant]
     Active Substance: METOPROLOL
  6. DAILY VITAMIN - CENTRUM SILVER [Concomitant]
  7. PREDNISONE. [Concomitant]
     Active Substance: PREDNISONE
  8. LISINOPRIL. [Concomitant]
     Active Substance: LISINOPRIL
  9. CLOPIDOGREL [Concomitant]
     Active Substance: CLOPIDOGREL BISULFATE
  10. FIRMAGON [Suspect]
     Active Substance: DEGARELIX ACETATE
     Indication: PROSTATE CANCER
     Dates: start: 20180224, end: 20180821
  11. OMEPRAZOLE. [Concomitant]
     Active Substance: OMEPRAZOLE
  12. SIMVASTATIN. [Concomitant]
     Active Substance: SIMVASTATIN
  13. HUMIRA [Concomitant]
     Active Substance: ADALIMUMAB
  14. TAMULOSIN [Concomitant]
     Active Substance: TAMSULOSIN

REACTIONS (6)
  - Blood glucose increased [None]
  - Fatigue [None]
  - Product label issue [None]
  - Dehydration [None]
  - Asthenia [None]
  - Diabetes mellitus [None]

NARRATIVE: CASE EVENT DATE: 20180821
